FAERS Safety Report 4500824-6 (Version None)
Quarter: 2004Q4

REPORT INFORMATION
  Report Type: 
  Country: None (occurrence: None)
  Receive Date: 20041115
  Receipt Date: 20041103
  Transmission Date: 20050328
  Serious: Yes (Disabling)
  Sender: FDA-Public Use
  Company Number: US-MERCK-0411USA00532

PATIENT
  Age: 66 Year
  Sex: Female

DRUGS (2)
  1. VIOXX [Suspect]
     Indication: MONARTHRITIS
     Route: 048
     Dates: start: 20010101
  2. VIOXX [Suspect]
     Indication: SPONDYLITIS
     Route: 048
     Dates: start: 20010101

REACTIONS (1)
  - PAIN IN EXTREMITY [None]
